FAERS Safety Report 24767982 (Version 1)
Quarter: 2024Q4

REPORT INFORMATION
  Report Type: Spontaneous
  Country: GR (occurrence: None)
  Receive Date: 20241223
  Receipt Date: 20241223
  Transmission Date: 20250115
  Serious: Yes (Disabling)
  Sender: Public
  Company Number: None

PATIENT
  Age: 18 Year
  Sex: Male
  Weight: 80 kg

DRUGS (1)
  1. ESCITALOPRAM [Suspect]
     Active Substance: ESCITALOPRAM OXALATE
     Indication: Depression
     Dosage: OTHER QUANTITY : 1 CAPSULE(S);?FREQUENCY : DAILY;?
     Route: 048
     Dates: start: 20220420, end: 20221219

REACTIONS (6)
  - Lethargy [None]
  - Headache [None]
  - Sperm concentration decreased [None]
  - Visual snow syndrome [None]
  - Brain fog [None]
  - Sexual dysfunction [None]

NARRATIVE: CASE EVENT DATE: 20230125
